FAERS Safety Report 16831567 (Version 1)
Quarter: 2019Q4

REPORT INFORMATION
  Report Type: Spontaneous
  Country: US (occurrence: US)
  Receive Date: 20190919
  Receipt Date: 20190919
  Transmission Date: 20200122
  Serious: Yes (Hospitalization)
  Sender: FDA-Public Use
  Company Number: None

PATIENT
  Sex: Male

DRUGS (10)
  1. TOPAMAX [Concomitant]
     Active Substance: TOPIRAMATE
  2. TYLENOL [Concomitant]
     Active Substance: ACETAMINOPHEN
  3. ALBUTEROL. [Concomitant]
     Active Substance: ALBUTEROL
  4. KLONOPIN [Concomitant]
     Active Substance: CLONAZEPAM
  5. AUGMENTIN [Concomitant]
     Active Substance: AMOXICILLIN\CLAVULANATE POTASSIUM
  6. PREVACID [Concomitant]
     Active Substance: LANSOPRAZOLE
  7. VIGABATRIN. [Suspect]
     Active Substance: VIGABATRIN
     Indication: EPILEPSY
     Route: 048
     Dates: start: 20190409
  8. VIMPAT [Concomitant]
     Active Substance: LACOSAMIDE
  9. SODIUM CHLOR [Concomitant]
     Active Substance: SODIUM CHLORIDE
  10. MOTRIN [Concomitant]
     Active Substance: IBUPROFEN

REACTIONS (1)
  - Hospitalisation [None]
